FAERS Safety Report 9675370 (Version 1)
Quarter: 2013Q4

REPORT INFORMATION
  Report Type: Spontaneous
  Country: US (occurrence: US)
  Receive Date: 20131107
  Receipt Date: 20131107
  Transmission Date: 20140711
  Serious: No
  Sender: FDA-Public Use
  Company Number: US-PFIZER INC-2013314115

PATIENT
  Age: 58 Year
  Sex: Female
  Weight: 98.87 kg

DRUGS (4)
  1. ADVIL [Suspect]
     Indication: PAIN
     Dosage: UNK, AS NEEDED
     Route: 048
     Dates: start: 2011, end: 201310
  2. ADVIL [Suspect]
     Indication: TOOTHACHE
  3. ADVIL [Suspect]
     Indication: PAIN
     Dosage: UNK, AS NEEDED
     Route: 048
     Dates: start: 201310
  4. ADVIL [Suspect]
     Indication: TOOTHACHE

REACTIONS (2)
  - Weight decreased [Unknown]
  - Burning sensation [Recovered/Resolved]
